FAERS Safety Report 9578538 (Version 1)
Quarter: 2013Q4

REPORT INFORMATION
  Report Type: Spontaneous
  Country: US (occurrence: US)
  Receive Date: 20131001
  Receipt Date: 20131001
  Transmission Date: 20140711
  Serious: No
  Sender: FDA-Public Use
  Company Number: US-AMGEN-USASP2013013096

PATIENT
  Sex: Male
  Weight: 95.24 kg

DRUGS (6)
  1. ENBREL [Suspect]
     Indication: RHEUMATOID ARTHRITIS
     Dosage: 50 MG, QWK
     Route: 058
  2. PREDNISONE [Concomitant]
     Dosage: 1 MG, UNK
  3. METHOTREXATE [Concomitant]
     Dosage: 1 G, UNK
  4. VITAMIN D                          /00107901/ [Concomitant]
     Dosage: 1000 UNIT, UNK
  5. FOLIC ACID [Concomitant]
     Dosage: UNK
  6. LISINOPRIL [Concomitant]
     Dosage: 10 MG, UNK

REACTIONS (3)
  - Musculoskeletal chest pain [Unknown]
  - Joint swelling [Unknown]
  - Nasopharyngitis [Unknown]
